FAERS Safety Report 9495103 (Version 1)
Quarter: 2013Q3

REPORT INFORMATION
  Report Type: Spontaneous
  Country: FR (occurrence: FR)
  Receive Date: 20130903
  Receipt Date: 20130903
  Transmission Date: 20140515
  Serious: Yes (Life-Threatening, Hospitalization, Other)
  Sender: FDA-Public Use
  Company Number: FR-ASTRAZENECA-2013SE66803

PATIENT
  Age: 22547 Day
  Sex: Male

DRUGS (5)
  1. INEXIUM [Suspect]
     Route: 048
  2. CARBOPLATINE [Suspect]
     Indication: LUNG CARCINOMA CELL TYPE UNSPECIFIED STAGE 0
     Route: 042
     Dates: start: 20130517, end: 20130808
  3. INNOHEP [Suspect]
     Indication: VENA CAVA THROMBOSIS
     Route: 058
     Dates: start: 20130809, end: 20130819
  4. ETOPOSIDE [Suspect]
     Indication: LUNG CARCINOMA CELL TYPE UNSPECIFIED STAGE 0
     Route: 042
     Dates: start: 20130517, end: 20130808
  5. DIFFU K [Concomitant]

REACTIONS (2)
  - Bone marrow failure [Recovered/Resolved]
  - Jugular vein thrombosis [Unknown]
